FAERS Safety Report 8251763-9 (Version None)
Quarter: 2012Q2

REPORT INFORMATION
  Report Type: 
  Country: None (occurrence: None)
  Receive Date: 20120402
  Receipt Date: 20120327
  Transmission Date: 20120825
  Serious: No
  Sender: FDA-Public Use
  Company Number: US-PFIZER INC-2012079387

PATIENT
  Sex: Female

DRUGS (1)
  1. LO FEMENAL-28 [Suspect]
     Dosage: UNK

REACTIONS (1)
  - INCORRECT DOSE ADMINISTERED [None]
